FAERS Safety Report 7966505-1 (Version None)
Quarter: 2011Q4

REPORT INFORMATION
  Report Type: 
  Country: None (occurrence: None)
  Receive Date: 20111208
  Receipt Date: 20111205
  Transmission Date: 20120403
  Serious: Yes (Disabling, Other)
  Sender: FDA-Public Use
  Company Number: US-MERCK-1107USA03605

PATIENT
  Age: 53 Year
  Sex: Female
  Weight: 54 kg

DRUGS (6)
  1. VERAPAMIL MSD LP [Concomitant]
     Indication: HYPERTENSION
     Route: 048
     Dates: start: 19970101
  2. ALENDRONATE SODIUM [Suspect]
     Route: 048
     Dates: end: 20091001
  3. FOSAMAX [Suspect]
     Indication: OSTEOPOROSIS
     Route: 048
     Dates: start: 20030127, end: 20080301
  4. ALENDRONATE SODIUM [Suspect]
     Route: 048
     Dates: start: 20090817
  5. ALENDRONATE SODIUM [Suspect]
     Indication: OSTEOPOROSIS
     Route: 048
     Dates: start: 20090112, end: 20090501
  6. FOSAMAX [Suspect]
     Route: 048
     Dates: start: 20080321, end: 20080801

REACTIONS (29)
  - OSTEONECROSIS OF JAW [None]
  - BARRETT'S OESOPHAGUS [None]
  - LOW DENSITY LIPOPROTEIN INCREASED [None]
  - OTORRHOEA [None]
  - EAR INFECTION [None]
  - ORAL INFECTION [None]
  - IRON DEFICIENCY ANAEMIA [None]
  - JAW DISORDER [None]
  - BACK INJURY [None]
  - NASAL SEPTUM DEVIATION [None]
  - EAR HAEMORRHAGE [None]
  - CUTIS LAXA [None]
  - OSTEOARTHRITIS [None]
  - VISUAL ACUITY REDUCED [None]
  - ANXIETY [None]
  - DRUG HYPERSENSITIVITY [None]
  - PAIN IN EXTREMITY [None]
  - CERUMEN IMPACTION [None]
  - OSTEOMYELITIS [None]
  - SCOLIOSIS [None]
  - EXOSTOSIS [None]
  - RETINAL TEAR [None]
  - ORAL TORUS [None]
  - BLOOD CHOLESTEROL INCREASED [None]
  - OTITIS EXTERNA [None]
  - VERTEBRAL FORAMINAL STENOSIS [None]
  - UPPER RESPIRATORY TRACT INFECTION [None]
  - HEPATITIS [None]
  - EUSTACHIAN TUBE DYSFUNCTION [None]
